FAERS Safety Report 7287472-2 (Version None)
Quarter: 2011Q1

REPORT INFORMATION
  Report Type: 
  Country: None (occurrence: None)
  Receive Date: 20110211
  Receipt Date: 20110201
  Transmission Date: 20110831
  Serious: Yes (Death)
  Sender: FDA-Public Use
  Company Number: CA-JNJFOC-20110200982

PATIENT
  Sex: Male
  Weight: 113.5 kg

DRUGS (12)
  1. REMICADE [Suspect]
     Indication: COLITIS ULCERATIVE
     Route: 042
  2. CELEBREX [Concomitant]
     Route: 048
  3. OXYCODONE HCL [Concomitant]
     Dosage: 5/325 1 TAB Q4-6 HRS PRN
  4. IMOVANE [Concomitant]
     Route: 048
  5. RATIO-SALBUTAMOL HFA [Concomitant]
     Dosage: 2 PUFFS QID
     Route: 055
  6. MICARDIS [Concomitant]
     Route: 048
  7. CIPRALEX [Concomitant]
     Route: 048
  8. METFORMIN HCL [Concomitant]
     Route: 048
  9. GLICLAZIDE(DIAMICRON) [Concomitant]
     Route: 048
  10. CRESTOR [Concomitant]
     Route: 048
  11. ADVAIR 250 DISKUS [Concomitant]
     Dosage: 2 PUFFS BID
     Route: 055
  12. OXAZEPAM [Concomitant]
     Route: 048

REACTIONS (1)
  - MYOCARDIAL INFARCTION [None]
